FAERS Safety Report 8616088 (Version 3)
Quarter: 2012Q4

REPORT INFORMATION
  Report Type: Report from Study
  Country: US (occurrence: US)
  Receive Date: 20120614
  Receipt Date: 20120830
  Transmission Date: 20130627
  Serious: Yes (Hospitalization)
  Sender: FDA-Public Use
  Company Number: US-JNJFOC-20120604205

PATIENT
  Age: 63 None
  Sex: Female
  Weight: 76 kg

DRUGS (5)
  1. SIMPONI [Suspect]
     Indication: RHEUMATOID ARTHRITIS
     Route: 058
     Dates: start: 2009
  2. PREDNISONE [Concomitant]
     Indication: RHEUMATOID ARTHRITIS
     Route: 048
     Dates: start: 1987
  3. LEUCOVORIN [Concomitant]
     Indication: PROPHYLAXIS
     Dates: start: 2009
  4. METHOTREXATE [Concomitant]
     Indication: RHEUMATOID ARTHRITIS
     Route: 048
     Dates: start: 2009
  5. SYNTHROID [Concomitant]
     Route: 048

REACTIONS (9)
  - Sjogren^s syndrome [Not Recovered/Not Resolved]
  - Osteoarthritis [Unknown]
  - Hypertension [Not Recovered/Not Resolved]
  - Muscle spasms [Recovered/Resolved]
  - Throat irritation [Not Recovered/Not Resolved]
  - Gastrooesophageal reflux disease [Unknown]
  - Injection site haemorrhage [Recovered/Resolved]
  - Underdose [Unknown]
  - Device malfunction [Unknown]
